FAERS Safety Report 16258870 (Version 3)
Quarter: 2020Q4

REPORT INFORMATION
  Report Type: Spontaneous
  Country: BD (occurrence: BD)
  Receive Date: 20190501
  Receipt Date: 20201201
  Transmission Date: 20210113
  Serious: Yes (Death, Other)
  Sender: FDA-Public Use
  Company Number: BD-ROCHE-2310899

PATIENT
  Sex: Male

DRUGS (3)
  1. XOLAIR [Suspect]
     Active Substance: OMALIZUMAB
     Route: 065
     Dates: start: 201811
  2. XOLAIR [Suspect]
     Active Substance: OMALIZUMAB
     Indication: PRODUCT USED FOR UNKNOWN INDICATION
     Dosage: (4 VIAL) (LAST DOSE IN FEB/2019)
     Route: 065
     Dates: start: 20181020, end: 201903
  3. XOLAIR [Suspect]
     Active Substance: OMALIZUMAB
     Route: 065
     Dates: start: 201903

REACTIONS (2)
  - Respiratory tract infection [Fatal]
  - Hypoxia [Unknown]

NARRATIVE: CASE EVENT DATE: 20190415
